FAERS Safety Report 9385152 (Version 2)
Quarter: 2013Q3

REPORT INFORMATION
  Report Type: Spontaneous
  Country: US (occurrence: US)
  Receive Date: 20130705
  Receipt Date: 20130712
  Transmission Date: 20140515
  Serious: Yes (Hospitalization)
  Sender: FDA-Public Use
  Company Number: US-INCYTE CORPORATION-2013IN001415

PATIENT
  Age: 64 Year
  Sex: Female

DRUGS (1)
  1. JAKAFI [Suspect]
     Indication: THROMBOCYTOPENIA
     Dosage: 5 MG, BID
     Route: 048
     Dates: start: 2009

REACTIONS (1)
  - Pneumonia [Unknown]
